FAERS Safety Report 18325187 (Version 1)
Quarter: 2020Q3

REPORT INFORMATION
  Report Type: Spontaneous
  Country: US (occurrence: US)
  Receive Date: 20200929
  Receipt Date: 20200929
  Transmission Date: 20201103
  Serious: No
  Sender: FDA-Public Use
  Company Number: US-HQ SPECIALTY-US-2020INT000076

PATIENT
  Age: 32 Year
  Sex: Female
  Weight: 49.5 kg

DRUGS (3)
  1. SODIUM CHLORIDE. [Suspect]
     Active Substance: SODIUM CHLORIDE
     Indication: PRODUCT USED FOR UNKNOWN INDICATION
     Dosage: UNK
     Route: 041
  2. MAGNESIUM SULFATE IN WATER FOR INJECTION [Suspect]
     Active Substance: MAGNESIUM SULFATE HEPTAHYDRATE
     Indication: HYPOMAGNESAEMIA
     Dosage: UNK, SINGLE, (PERIPHERAL LINE IN LEFT MID FOREARM)
     Route: 042
     Dates: start: 20200709, end: 20200709
  3. MAGNESIUM [Concomitant]
     Active Substance: MAGNESIUM
     Indication: PRODUCT USED FOR UNKNOWN INDICATION
     Dosage: UNK
     Route: 065

REACTIONS (1)
  - Burning sensation [Unknown]

NARRATIVE: CASE EVENT DATE: 20200709
